FAERS Safety Report 10558433 (Version 1)
Quarter: 2014Q4

REPORT INFORMATION
  Report Type: Spontaneous
  Country: US (occurrence: US)
  Receive Date: 20141031
  Receipt Date: 20141031
  Transmission Date: 20150529
  Serious: Yes (Life-Threatening, Hospitalization, Other)
  Sender: FDA-Public Use
  Company Number: US-ABBVIE-14P-163-1301508-00

PATIENT
  Sex: Male

DRUGS (4)
  1. TESTIM [Suspect]
     Active Substance: TESTOSTERONE
     Indication: BLOOD TESTOSTERONE DECREASED
     Route: 065
  2. CYPIONATE TESTOSTERONE [Suspect]
     Active Substance: TESTOSTERONE CYPIONATE
     Indication: BLOOD TESTOSTERONE DECREASED
     Route: 065
  3. ANDROGEL [Suspect]
     Active Substance: TESTOSTERONE
     Indication: BLOOD TESTOSTERONE DECREASED
     Route: 061
  4. DEPO TESTOSTERONE [Suspect]
     Active Substance: TESTOSTERONE
     Indication: BLOOD TESTOSTERONE DECREASED
     Route: 065

REACTIONS (10)
  - Cardiac arrest [Unknown]
  - Pulmonary embolism [Unknown]
  - Thrombosis [Unknown]
  - Pain [Unknown]
  - Economic problem [Unknown]
  - Emotional disorder [Unknown]
  - Emotional distress [Unknown]
  - Injury [Unknown]
  - Impaired work ability [Unknown]
  - Cerebrovascular accident [Unknown]
